FAERS Safety Report 12761903 (Version 1)
Quarter: 2016Q3

REPORT INFORMATION
  Report Type: Report from Study
  Country: BR (occurrence: BR)
  Receive Date: 20160920
  Receipt Date: 20160920
  Transmission Date: 20161109
  Serious: Yes (Other)
  Sender: FDA-Public Use
  Company Number: PHHY2016BR128134

PATIENT
  Sex: Male
  Weight: 64.8 kg

DRUGS (4)
  1. EXELON PATCH [Suspect]
     Active Substance: RIVASTIGMINE
     Indication: MEMORY IMPAIRMENT
     Dosage: 4.6 MG, QD,PATCH 5 (CM2)
     Route: 062
  2. TAMSULOSIN HYDROCHLORIDE. [Suspect]
     Active Substance: TAMSULOSIN HYDROCHLORIDE
     Indication: PRODUCT USED FOR UNKNOWN INDICATION
     Dosage: 0.4 MG, QD
     Route: 048
  3. RAZAPINA [Concomitant]
     Active Substance: MIRTAZAPINE
     Indication: PRODUCT USED FOR UNKNOWN INDICATION
     Dosage: 30 MG, HALF TABLET
     Route: 048
  4. DUTASTERIDA [Concomitant]
     Indication: PRODUCT USED FOR UNKNOWN INDICATION
     Dosage: 0.5 MG, QD
     Route: 048

REACTIONS (9)
  - Pallor [Unknown]
  - Decreased appetite [Unknown]
  - Condition aggravated [Unknown]
  - Blood pressure decreased [Recovering/Resolving]
  - Agitation [Unknown]
  - Asthenia [Unknown]
  - Memory impairment [Unknown]
  - Abnormal behaviour [Unknown]
  - Drug ineffective [Unknown]
